FAERS Safety Report 7590871-2 (Version None)
Quarter: 2011Q3

REPORT INFORMATION
  Report Type: 
  Country: None (occurrence: None)
  Receive Date: 20110705
  Receipt Date: 20110629
  Transmission Date: 20111222
  Serious: Yes (Hospitalization)
  Sender: FDA-Public Use
  Company Number: JP-B.I. PHARMACEUTICALS,INC./RIDGEFIELD-2011-BP-14012NB

PATIENT
  Sex: Female
  Weight: 61.7 kg

DRUGS (8)
  1. PRADAXA [Suspect]
     Indication: ATRIAL FIBRILLATION
     Dosage: 220 MG
     Route: 048
     Dates: start: 20110518
  2. URITOS [Concomitant]
     Indication: HYPERTONIC BLADDER
     Dosage: 0.1 MG
     Route: 048
     Dates: start: 20100712
  3. BONOTEO [Concomitant]
     Indication: OSTEOPOROSIS
     Dosage: 1 MG
     Route: 048
     Dates: start: 20100712
  4. OLMESARTAN MEDOXOMIL [Concomitant]
     Indication: ESSENTIAL HYPERTENSION
     Dosage: 20 MG
     Route: 048
     Dates: start: 20100712
  5. ATELEC [Concomitant]
     Indication: ESSENTIAL HYPERTENSION
     Dosage: 10 MG
     Route: 048
     Dates: start: 20100712
  6. LOCHOLEST [Concomitant]
     Indication: DYSLIPIDAEMIA
     Dosage: 20 MG
     Route: 048
     Dates: start: 20100712
  7. ARICEPT [Concomitant]
     Indication: DEMENTIA
     Dosage: 5 MG
     Route: 048
     Dates: start: 20110412
  8. HIRUDOID [Concomitant]
     Route: 062

REACTIONS (1)
  - DECREASED APPETITE [None]
